FAERS Safety Report 5163626-6 (Version None)
Quarter: 2006Q4

REPORT INFORMATION
  Report Type: 
  Country: None (occurrence: None)
  Receive Date: 20061127
  Receipt Date: 20061127
  Transmission Date: 20070319
  Serious: Yes (Other)
  Sender: FDA-Public Use
  Company Number: None

PATIENT
  Sex: Female
  Weight: 72.5755 kg

DRUGS (2)
  1. ESTRADIOL [Suspect]
     Indication: ATROPHIC VULVOVAGINITIS
     Dosage: 0.05 MG WEEKLY PATCH
     Dates: start: 20060913
  2. ESTRADIOL [Suspect]
     Indication: MENOPAUSAL SYMPTOMS
     Dosage: 0.05 MG WEEKLY PATCH
     Dates: start: 20060913

REACTIONS (3)
  - BLISTER [None]
  - SKIN LESION [None]
  - URTICARIA [None]
